FAERS Safety Report 9371694 (Version 1)
Quarter: 2013Q2

REPORT INFORMATION
  Report Type: Spontaneous
  Country: US (occurrence: US)
  Receive Date: 20130627
  Receipt Date: 20130627
  Transmission Date: 20140414
  Serious: No
  Sender: FDA-Public Use
  Company Number: US-PFIZER INC-2013189968

PATIENT
  Age: 68 Year
  Sex: Male
  Weight: 95.24 kg

DRUGS (3)
  1. VIAGRA [Suspect]
     Indication: ERECTILE DYSFUNCTION
     Dosage: 50 MG, AS NEEDED
     Route: 048
     Dates: start: 2009
  2. VIAGRA [Suspect]
     Dosage: 50 MG, 2 TABLETS TOGETHER
     Route: 048
     Dates: start: 201306
  3. VIAGRA [Suspect]
     Dosage: 100 MG, UNK
     Route: 048
     Dates: start: 201306

REACTIONS (3)
  - Expired drug administered [Unknown]
  - Drug ineffective [Unknown]
  - Headache [Recovered/Resolved]
